FAERS Safety Report 6282840-X (Version None)
Quarter: 2009Q4

REPORT INFORMATION
  Report Type: 
  Country: None (occurrence: None)
  Receive Date: 20090722
  Receipt Date: 20090722
  Transmission Date: 20100525
  Serious: Yes (Other)
  Sender: FDA-Public Use
  Company Number: None

PATIENT
  Age: 16 Year
  Sex: Female

DRUGS (1)
  1. YASMIN [Suspect]
     Dates: start: 20070218, end: 20070304

REACTIONS (8)
  - BIOPSY LIVER ABNORMAL [None]
  - CHOLECYSTITIS CHRONIC [None]
  - CHOLESTASIS [None]
  - HEPATIC FIBROSIS [None]
  - INFLAMMATION [None]
  - LIVER DISORDER [None]
  - LIVER INJURY [None]
  - POST PROCEDURAL HAEMORRHAGE [None]
